FAERS Safety Report 12611520 (Version 2)
Quarter: 2016Q3

REPORT INFORMATION
  Report Type: Spontaneous
  Country: CH (occurrence: AU)
  Receive Date: 20160801
  Receipt Date: 20160919
  Transmission Date: 20161109
  Serious: Yes (Other)
  Sender: FDA-Public Use
  Company Number: CH-LPDUSPRD-20160661

PATIENT
  Age: 68 Year
  Sex: Male

DRUGS (2)
  1. FERINJECT [Suspect]
     Active Substance: FERRIC CARBOXYMALTOSE
     Dosage: 1000 MG
     Route: 041
     Dates: start: 20160705, end: 20160705
  2. CIALIS [Concomitant]
     Active Substance: TADALAFIL

REACTIONS (6)
  - Stevens-Johnson syndrome [Unknown]
  - Urticaria [Unknown]
  - Flushing [Unknown]
  - Pyrexia [Unknown]
  - Serum sickness [Unknown]
  - Angioedema [Unknown]

NARRATIVE: CASE EVENT DATE: 20160714
